FAERS Safety Report 5921879-8 (Version None)
Quarter: 2008Q4

REPORT INFORMATION
  Report Type: 
  Country: None (occurrence: None)
  Receive Date: 20081015
  Receipt Date: 20080929
  Transmission Date: 20090506
  Serious: Yes (Hospitalization)
  Sender: FDA-Public Use
  Company Number: WAES 0810USA00017

PATIENT
  Age: 58 Year
  Sex: Female
  Weight: 95.2554 kg

DRUGS (18)
  1. ISENTRESS [Suspect]
     Indication: HIV INFECTION
     Dosage: 400 MG/BID/PO
     Route: 048
     Dates: start: 20080429, end: 20080928
  2. NORVIR [Suspect]
     Indication: HIV INFECTION
     Dosage: 100 MG/BID/PO
     Route: 048
     Dates: start: 20080429
  3. TRUVADA [Suspect]
     Indication: HIV INFECTION
     Dosage: 200-300 MG/DAILY/PO
     Route: 048
     Dates: start: 20080429
  4. DARUNAVIR UNK [Suspect]
     Indication: HIV INFECTION
     Dosage: 600 MG/BID/PO
     Route: 048
     Dates: start: 20080429
  5. ETRAVIRINE UNK [Suspect]
     Indication: HIV INFECTION
     Dosage: 200 MG/BID/PO
     Route: 048
     Dates: start: 20080429
  6. BACTRIM DS [Concomitant]
  7. BUMEX [Concomitant]
  8. HUMALOG [Concomitant]
  9. LANTUS [Concomitant]
  10. LOMOTIL [Concomitant]
  11. PERCOCET [Concomitant]
  12. PREMARIN [Concomitant]
  13. XANAX [Concomitant]
  14. XOFRAN [Concomitant]
  15. XOFRAN [Concomitant]
  16. FOLIC ACID [Concomitant]
  17. LORAZEPAM [Concomitant]
  18. METFORMIN HYDROCHLORIDE [Concomitant]

REACTIONS (11)
  - ABDOMINAL PAIN [None]
  - DIARRHOEA [None]
  - FALL [None]
  - FATIGUE [None]
  - INCOHERENT [None]
  - MENTAL STATUS CHANGES [None]
  - MUSCULAR WEAKNESS [None]
  - OPEN WOUND [None]
  - POLYNEUROPATHY [None]
  - RASH [None]
  - SPINAL OSTEOARTHRITIS [None]
